FAERS Safety Report 25103588 (Version 1)
Quarter: 2025Q1

REPORT INFORMATION
  Report Type: Spontaneous
  Country: AU (occurrence: AU)
  Receive Date: 20250321
  Receipt Date: 20250321
  Transmission Date: 20250409
  Serious: No
  Sender: SANDOZ
  Company Number: AU-SANDOZ-SDZ2025AU013156

PATIENT
  Sex: Female

DRUGS (1)
  1. ESTRADIOL [Suspect]
     Active Substance: ESTRADIOL
     Indication: Product used for unknown indication
     Route: 062

REACTIONS (3)
  - Application site swelling [Unknown]
  - Application site erythema [Unknown]
  - Application site pruritus [Unknown]
